FAERS Safety Report 6808963-1 (Version None)
Quarter: 2010Q2

REPORT INFORMATION
  Report Type: 
  Country: None (occurrence: None)
  Receive Date: 20100630
  Receipt Date: 20091124
  Transmission Date: 20101027
  Serious: No
  Sender: FDA-Public Use
  Company Number: US-PFIZER INC-2009271683

PATIENT
  Sex: Male

DRUGS (4)
  1. TIKOSYN [Suspect]
     Indication: ATRIAL FIBRILLATION
     Dosage: 250 UG, 2X/DAY
     Dates: start: 20070901
  2. OMEPRAZOLE [Concomitant]
     Dosage: UNK
  3. FORMOTEROL [Concomitant]
     Dosage: UNK
  4. COMBIVENT [Concomitant]
     Dosage: UNK

REACTIONS (1)
  - ATRIAL FLUTTER [None]
